FAERS Safety Report 7025209-2 (Version None)
Quarter: 2010Q4

REPORT INFORMATION
  Report Type: 
  Country: None (occurrence: None)
  Receive Date: 20101001
  Receipt Date: 20100928
  Transmission Date: 20110411
  Serious: Yes (Other)
  Sender: FDA-Public Use
  Company Number: CO-WYE-H17837110

PATIENT
  Sex: Female

DRUGS (1)
  1. RAPAMUNE [Suspect]
     Indication: PROPHYLAXIS AGAINST TRANSPLANT REJECTION
     Dosage: 1 MG (FREQUENCY NOT SPECIFIED)
     Route: 048

REACTIONS (3)
  - HIP SURGERY [None]
  - KNEE OPERATION [None]
  - LIGAMENT OPERATION [None]
